FAERS Safety Report 20190127 (Version 11)
Quarter: 2022Q4

REPORT INFORMATION
  Report Type: Report from Study
  Country: DE (occurrence: DE)
  Receive Date: 20211215
  Receipt Date: 20221005
  Transmission Date: 20230113
  Serious: Yes (Hospitalization, Other)
  Sender: FDA-Public Use
  Company Number: DE-TAKEDA-DE202010231

PATIENT
  Sex: Male

DRUGS (9)
  1. VON WILLEBRAND FACTOR HUMAN [Suspect]
     Active Substance: VON WILLEBRAND FACTOR HUMAN
     Indication: Von Willebrand^s disease
     Dosage: 2600 INTERNATIONAL UNIT, 2/WEEK
     Route: 042
     Dates: start: 20200309
  2. VON WILLEBRAND FACTOR HUMAN [Suspect]
     Active Substance: VON WILLEBRAND FACTOR HUMAN
     Dosage: 1950 INTERNATIONAL UNIT, 2/WEEK
     Route: 042
     Dates: start: 20200309
  3. VON WILLEBRAND FACTOR HUMAN [Suspect]
     Active Substance: VON WILLEBRAND FACTOR HUMAN
     Dosage: 3250 INTERNATIONAL UNIT, 2/WEEK
     Route: 042
     Dates: start: 20201203
  4. VON WILLEBRAND FACTOR HUMAN [Suspect]
     Active Substance: VON WILLEBRAND FACTOR HUMAN
     Dosage: 1300 INTERNATIONAL UNIT, 2/WEEK
     Route: 042
     Dates: start: 20210713
  5. VON WILLEBRAND FACTOR HUMAN [Suspect]
     Active Substance: VON WILLEBRAND FACTOR HUMAN
     Dosage: 650 INTERNATIONAL UNIT, 2/WEEK
     Route: 042
     Dates: start: 20210713
  6. VON WILLEBRAND FACTOR HUMAN [Suspect]
     Active Substance: VON WILLEBRAND FACTOR HUMAN
     Dosage: 1950 INTERNATIONAL UNIT, 3/WEEK
     Route: 042
     Dates: start: 20210713
  7. VON WILLEBRAND FACTOR HUMAN [Suspect]
     Active Substance: VON WILLEBRAND FACTOR HUMAN
     Dosage: 650 INTERNATIONAL UNIT, 3/WEEK
     Route: 042
     Dates: start: 20200309
  8. VON WILLEBRAND FACTOR HUMAN [Suspect]
     Active Substance: VON WILLEBRAND FACTOR HUMAN
     Dosage: 1300 INTERNATIONAL UNIT, 3/WEEK
     Route: 042
     Dates: start: 20200309
  9. VON WILLEBRAND FACTOR HUMAN [Suspect]
     Active Substance: VON WILLEBRAND FACTOR HUMAN
     Dosage: 1950 INTERNATIONAL UNIT, 2/WEEK
     Route: 042
     Dates: start: 20200303

REACTIONS (21)
  - Cardiac failure [Recovered/Resolved]
  - Prostate cancer metastatic [Recovered/Resolved]
  - Gastrointestinal haemorrhage [Recovered/Resolved]
  - Melaena [Recovering/Resolving]
  - Stress cardiomyopathy [Recovered/Resolved]
  - Weight decreased [Recovered/Resolved]
  - Micturition disorder [Recovered/Resolved]
  - Kidney congestion [Recovered/Resolved]
  - Blood pressure systolic decreased [Recovering/Resolving]
  - Haemoglobin decreased [Recovering/Resolving]
  - Immobile [Recovered/Resolved]
  - Infusion site haematoma [Not Recovered/Not Resolved]
  - Epistaxis [Recovered/Resolved]
  - Tooth fracture [Recovered/Resolved]
  - Iron deficiency anaemia [Unknown]
  - Poor venous access [Not Recovered/Not Resolved]
  - Back pain [Recovered/Resolved]
  - Overdose [Recovered/Resolved with Sequelae]
  - General physical health deterioration [Recovered/Resolved]
  - Blood pressure decreased [Recovered/Resolved]
  - Asthenia [Recovered/Resolved]

NARRATIVE: CASE EVENT DATE: 20201201
